FAERS Safety Report 10292074 (Version 5)
Quarter: 2014Q3

REPORT INFORMATION
  Report Type: Report from Study
  Country: US (occurrence: US)
  Receive Date: 20140710
  Receipt Date: 20140829
  Transmission Date: 20150326
  Serious: Yes (Life-Threatening, Hospitalization)
  Sender: FDA-Public Use
  Company Number: US-ACTELION-A-NJ2013-78220

PATIENT
  Age: 69 Year
  Sex: Female

DRUGS (22)
  1. DIGOXIN. [Concomitant]
     Active Substance: DIGOXIN
     Dosage: 120 MCG, QD, MON, WED, FRI
  2. VELETRI [Suspect]
     Active Substance: EPOPROSTENOL
     Indication: PULMONARY ARTERIAL HYPERTENSION
     Dosage: 32 NG/KG, PER MIN
     Route: 042
     Dates: start: 20100402
  3. CYMBALTA [Concomitant]
     Active Substance: DULOXETINE HYDROCHLORIDE
     Dosage: 60 MG, QD
  4. TRACLEER [Suspect]
     Active Substance: BOSENTAN\BOSENTAN MONOHYDRATE
     Indication: PULMONARY ARTERIAL HYPERTENSION
     Dosage: 125 MG, BID
     Route: 048
     Dates: start: 200902
  5. FERROUS SULFATE [Concomitant]
     Active Substance: FERROUS SULFATE\FERROUS SULFATE, DRIED
     Dosage: 325 MG, QD
  6. TYLENOL [Concomitant]
     Active Substance: ACETAMINOPHEN
     Dosage: UNK, PRN
  7. RIOCIGUAT [Concomitant]
     Active Substance: RIOCIGUAT
     Dosage: 2.5 MG, TID
  8. AMIODARONE [Concomitant]
     Active Substance: AMIODARONE
     Dosage: 200 MG, QD
  9. CRESTOR [Concomitant]
     Active Substance: ROSUVASTATIN CALCIUM
     Dosage: 20 MG, UNK
  10. PROTONIX [Concomitant]
     Active Substance: PANTOPRAZOLE SODIUM
     Dosage: 40 MG, QD
  11. SINGULAIR [Concomitant]
     Active Substance: MONTELUKAST SODIUM
     Dosage: 10 MG, QD
  12. CENTRUM [Concomitant]
     Active Substance: VITAMINS
  13. LISINOPRIL. [Concomitant]
     Active Substance: LISINOPRIL
  14. SILDENAFIL [Concomitant]
     Active Substance: SILDENAFIL
  15. KEFLEX [Concomitant]
     Active Substance: CEPHALEXIN
     Dosage: 500 MG, BID
  16. XANAX [Concomitant]
     Active Substance: ALPRAZOLAM
     Dosage: 0.25 MG, PRN
  17. FLONASE [Concomitant]
     Active Substance: FLUTICASONE PROPIONATE
     Dosage: UNK, QD
     Route: 045
  18. OXYGEN. [Concomitant]
     Active Substance: OXYGEN
     Dosage: 8 L/MIN, UNK
  19. TRACLEER [Suspect]
     Active Substance: BOSENTAN\BOSENTAN MONOHYDRATE
     Dosage: 62.5 MG, BID
     Route: 048
     Dates: start: 200901, end: 200902
  20. COUMADIN [Concomitant]
     Active Substance: WARFARIN SODIUM
     Dosage: 2.5 MG, TID
  21. CLARITIN [Concomitant]
     Active Substance: LORATADINE
     Dosage: 10 MG, QD
  22. NAPROXEN. [Concomitant]
     Active Substance: NAPROXEN
     Dosage: 220 MG, BID

REACTIONS (20)
  - Right ventricular failure [Recovering/Resolving]
  - Pericardial effusion [Unknown]
  - Concomitant disease progression [Not Recovered/Not Resolved]
  - Diarrhoea [Recovering/Resolving]
  - Abdominal distension [Unknown]
  - Fluid overload [Recovering/Resolving]
  - Pleural effusion [Unknown]
  - Asthenia [Recovering/Resolving]
  - Cardiac failure congestive [Unknown]
  - Atrial fibrillation [Unknown]
  - Hypoacusis [Not Recovered/Not Resolved]
  - Dehydration [Unknown]
  - Hypotension [Recovering/Resolving]
  - Oxygen saturation decreased [Unknown]
  - Hypertension [Unknown]
  - Dyspnoea [Unknown]
  - Chest pain [Recovered/Resolved]
  - Disease progression [Unknown]
  - Pulmonary arterial hypertension [Unknown]
  - Malaise [Not Recovered/Not Resolved]

NARRATIVE: CASE EVENT DATE: 20130116
